FAERS Safety Report 19461109 (Version 1)
Quarter: 2021Q2

REPORT INFORMATION
  Report Type: Report from Study
  Country: FR (occurrence: FR)
  Receive Date: 20210625
  Receipt Date: 20210625
  Transmission Date: 20210717
  Serious: Yes (Hospitalization)
  Sender: FDA-Public Use
  Company Number: FR-ROCHE-2854605

PATIENT
  Age: 74 Year
  Sex: Male

DRUGS (2)
  1. ATEZOLIZUMAB. [Suspect]
     Active Substance: ATEZOLIZUMAB
     Indication: BLADDER TRANSITIONAL CELL CARCINOMA
     Dosage: ON 15/SEP/2020, HE RECEIVED LAST DOSE OF ATEZOLIZUMAB (1200 MG) PRIOR TO ONSET OF SERIOUS ADVERSE EV
     Route: 041
     Dates: start: 20200915, end: 20200915
  2. BCG?MEDAC [Suspect]
     Active Substance: BACILLUS CALMETTE-GUERIN ANTIGEN, UNSPECIFIED SUBSTRAIN
     Indication: BLADDER TRANSITIONAL CELL CARCINOMA
     Dosage: ON 29/SEP/2020, HE RECEIVED LAST DOSE OF BCG (50 ML) PRIOR TO ONSET OF SERIOUS ADVERSE EVENT.?CUMULA
     Route: 065
     Dates: start: 20200915, end: 20200929

REACTIONS (2)
  - Tuberculosis [Not Recovered/Not Resolved]
  - Orchitis [Not Recovered/Not Resolved]

NARRATIVE: CASE EVENT DATE: 20200930
